FAERS Safety Report 6161866-0 (Version None)
Quarter: 2009Q2

REPORT INFORMATION
  Report Type: 
  Country: None (occurrence: None)
  Receive Date: 20090421
  Receipt Date: 20090410
  Transmission Date: 20091009
  Serious: Yes (Death, Hospitalization)
  Sender: FDA-Public Use
  Company Number: A0779466A

PATIENT
  Age: 56 Year
  Sex: Male

DRUGS (6)
  1. AVANDIA [Suspect]
     Dosage: 4MG PER DAY
     Route: 048
     Dates: start: 20050308, end: 20060115
  2. AVANDAMET [Suspect]
     Route: 048
     Dates: start: 20040913, end: 20041201
  3. LOTREL [Concomitant]
  4. BENAZEPRIL HYDROCHLORIDE [Concomitant]
  5. LABETALOL HCL [Concomitant]
  6. ZOCOR [Concomitant]

REACTIONS (1)
  - MYOCARDIAL INFARCTION [None]
